FAERS Safety Report 4701121-6 (Version None)
Quarter: 2005Q2

REPORT INFORMATION
  Report Type: 
  Country: None (occurrence: None)
  Receive Date: 20050624
  Receipt Date: 20050617
  Transmission Date: 20051028
  Serious: Yes (Life-Threatening)
  Sender: FDA-Public Use
  Company Number: 2005AP03208

PATIENT
  Age: 29 Year
  Sex: Female

DRUGS (7)
  1. CARBOCAIN [Suspect]
     Indication: INFILTRATION ANAESTHESIA
     Dosage: 3 ML DAILY
     Dates: start: 20050113, end: 20050113
  2. MEILAX [Concomitant]
  3. LORAZEPAM [Concomitant]
  4. LENDORMIN [Concomitant]
  5. TERNELIN [Concomitant]
  6. PRIMPERAN INJ [Concomitant]
  7. SELBEX [Concomitant]

REACTIONS (3)
  - ASTHMA [None]
  - CYANOSIS [None]
  - MYOFASCIAL PAIN SYNDROME [None]
